FAERS Safety Report 26090874 (Version 1)
Quarter: 2025Q4

REPORT INFORMATION
  Report Type: Spontaneous
  Country: GB (occurrence: GB)
  Receive Date: 20251126
  Receipt Date: 20251126
  Transmission Date: 20260118
  Serious: Yes (Disabling)
  Sender: GE HEALTHCARE
  Company Number: None

PATIENT
  Age: 51 Year
  Sex: Female

DRUGS (1)
  1. CLARISCAN [Suspect]
     Active Substance: GADOTERATE MEGLUMINE
     Indication: Magnetic resonance imaging
     Dosage: UNK UNK, TOTAL
     Route: 065
     Dates: start: 20251031

REACTIONS (4)
  - Insomnia [Not Recovered/Not Resolved]
  - Lethargy [Not Recovered/Not Resolved]
  - Hypoaesthesia [Not Recovered/Not Resolved]
  - Malaise [Not Recovered/Not Resolved]

NARRATIVE: CASE EVENT DATE: 20251031
